FAERS Safety Report 11052261 (Version 2)
Quarter: 2015Q2

REPORT INFORMATION
  Report Type: Spontaneous
  Country: FR (occurrence: FR)
  Receive Date: 20150421
  Receipt Date: 20150512
  Transmission Date: 20150821
  Serious: Yes (Death, Hospitalization, Other)
  Sender: FDA-Public Use
  Company Number: FR-PFIZER INC-2015131358

PATIENT
  Age: 77 Year
  Sex: Male

DRUGS (14)
  1. EUPANTOL [Suspect]
     Active Substance: PANTOPRAZOLE SODIUM
     Dosage: 80 MG, 1X/DAY
     Route: 048
     Dates: start: 20150215, end: 20150303
  2. OXALIPLATIN. [Suspect]
     Active Substance: OXALIPLATIN
     Dosage: 170 MG, CYCLIC
     Dates: start: 20150106, end: 20150106
  3. WELLVONE [Concomitant]
     Active Substance: ATOVAQUONE
     Dosage: UNK
     Dates: start: 201412, end: 20150303
  4. OXALIPLATIN. [Suspect]
     Active Substance: OXALIPLATIN
     Indication: HEPATIC CANCER
     Dosage: 170 MG, CYCLIC
     Route: 042
     Dates: start: 20141212, end: 20141212
  5. OXALIPLATIN. [Suspect]
     Active Substance: OXALIPLATIN
     Dosage: 170 MG, CYCLIC
     Dates: start: 20150203, end: 20150203
  6. GEMOX (GEMFIBROZIL) [Suspect]
     Active Substance: GEMFIBROZIL
     Indication: HEPATIC CANCER
     Dosage: 1700 MG, CYCLIC
     Route: 042
     Dates: start: 20141212, end: 20141212
  7. GEMOX (GEMFIBROZIL) [Suspect]
     Active Substance: GEMFIBROZIL
     Dosage: 1700 MG, CYCLIC
     Route: 042
     Dates: start: 20150120, end: 20150120
  8. GEMOX (GEMFIBROZIL) [Suspect]
     Active Substance: GEMFIBROZIL
     Dosage: 1700 MG, CYCLIC
     Route: 042
     Dates: start: 20150203, end: 20150203
  9. CERTICAN [Concomitant]
     Active Substance: EVEROLIMUS
     Dosage: 0.75 MG, UNK
     Dates: start: 2006, end: 20150219
  10. ATENOLOL. [Concomitant]
     Active Substance: ATENOLOL
     Dosage: UNK
     Dates: start: 201407, end: 20150303
  11. TRIATEC [Suspect]
     Active Substance: RAMIPRIL
     Dosage: 2.5 MG, DAILY
     Route: 048
     Dates: start: 201407, end: 20150220
  12. TRUVADA [Concomitant]
     Active Substance: EMTRICITABINE\TENOFOVIR DISOPROXIL FUMARATE
     Dosage: UNK
     Dates: start: 2006, end: 20150303
  13. OXALIPLATIN. [Suspect]
     Active Substance: OXALIPLATIN
     Dosage: 170 MG, CYCLIC
     Dates: start: 20150120, end: 20150120
  14. GEMOX (GEMFIBROZIL) [Suspect]
     Active Substance: GEMFIBROZIL
     Dosage: 1700 MG, CYCLIC
     Route: 042
     Dates: start: 20150106, end: 20150106

REACTIONS (12)
  - Overdose [None]
  - Hypokalaemia [Fatal]
  - Thrombocytopenia [Unknown]
  - Respiratory distress [None]
  - Sepsis [Fatal]
  - Lung disorder [Unknown]
  - Condition aggravated [Unknown]
  - Acute kidney injury [Fatal]
  - Lymphopenia [Unknown]
  - Haemofiltration [None]
  - Diarrhoea [Unknown]
  - Aspergillus infection [None]

NARRATIVE: CASE EVENT DATE: 20150210
